FAERS Safety Report 9074787 (Version 1)
Quarter: 2013Q1

REPORT INFORMATION
  Report Type: Spontaneous
  Country: US (occurrence: US)
  Receive Date: 20130129
  Receipt Date: 20130129
  Transmission Date: 20140127
  Serious: Yes (Hospitalization, Other)
  Sender: FDA-Public Use
  Company Number: US-009507513-1301USA012777

PATIENT
  Sex: Male

DRUGS (7)
  1. SINGULAIR [Suspect]
  2. ALCOHOL [Suspect]
  3. TRANYLCYPROMINE [Suspect]
  4. ALPRAZOLAM [Suspect]
  5. ZOLPIDEM TARTRATE [Suspect]
  6. ACETAMINOPHEN (+) HYDROCODONE BITARTRATE [Suspect]
  7. CETIRIZINE HYDROCHLORIDE [Suspect]

REACTIONS (1)
  - Suicide attempt [Unknown]
